FAERS Safety Report 21422181 (Version 1)
Quarter: 2022Q4

REPORT INFORMATION
  Report Type: Report from Study
  Country: MX (occurrence: MX)
  Receive Date: 20221007
  Receipt Date: 20221007
  Transmission Date: 20230112
  Serious: Yes (Other)
  Sender: FDA-Public Use
  Company Number: MX-NOVARTISPH-NVSC2022MX226667

PATIENT
  Sex: Female

DRUGS (4)
  1. EXFORGE HCT [Suspect]
     Active Substance: AMLODIPINE BESYLATE\HYDROCHLOROTHIAZIDE\VALSARTAN
     Indication: Hypertension
     Dosage: 1 DOSAGE FORM, QD (HYDROCHLOROTHIAZIDE: 5MG/AMLODIPINE: 160MG/ VALSARTAN:12.5 MG)
     Route: 048
     Dates: start: 202006
  2. EXFORGE HCT [Suspect]
     Active Substance: AMLODIPINE BESYLATE\HYDROCHLOROTHIAZIDE\VALSARTAN
     Dosage: 1 DOSAGE FORM, BID (HYDROCHLOROTHIAZIDE: 5MG/AMLODIPINE: 160MG/ VALSARTAN:12.5 MG)  (STOPPED 28 DAYS
     Route: 048
  3. EXFORGE HCT [Suspect]
     Active Substance: AMLODIPINE BESYLATE\HYDROCHLOROTHIAZIDE\VALSARTAN
     Dosage: 1 DOSAGE FORM, QD HYDROCHLOROTHIAZIDE: 10MG/ AMLODIPINE: 320MG/ VALSARTAN: 25MG)
     Route: 048
     Dates: start: 20220909
  4. PREGABALIN [Suspect]
     Active Substance: PREGABALIN
     Indication: Radiculopathy
     Dosage: UNK
     Route: 065
     Dates: start: 20220827, end: 20220907

REACTIONS (12)
  - Oedema [Unknown]
  - Hypertension [Recovered/Resolved]
  - Feeling abnormal [Unknown]
  - Disorientation [Unknown]
  - Thinking abnormal [Unknown]
  - Balance disorder [Unknown]
  - Tremor [Unknown]
  - Somnolence [Unknown]
  - Blood pressure decreased [Recovered/Resolved]
  - Hypertension [Unknown]
  - Product dose omission in error [Unknown]
  - Off label use [Unknown]
